FAERS Safety Report 5216945-9 (Version None)
Quarter: 2007Q1

REPORT INFORMATION
  Report Type: 
  Country: None (occurrence: None)
  Receive Date: 20070119
  Receipt Date: 20070109
  Transmission Date: 20070707
  Serious: Yes (Hospitalization)
  Sender: FDA-Public Use
  Company Number: 2006SP008349

PATIENT
  Age: 41 Year
  Sex: Male

DRUGS (2)
  1. PEGATRON (PEGYLATED INTERFERON ALFA-2B W/RIBAVIRIN) [Suspect]
     Indication: HEPATITIS C
     Dosage: 150 MCG; QW; SC; 600 MG; BID; PO
     Route: 058
     Dates: start: 20060817, end: 20061130
  2. PEGATRON (PEGYLATED INTERFERON ALFA-2B W/RIBAVIRIN) [Suspect]
     Indication: HEPATITIS C
     Dosage: 150 MCG; QW; SC; 600 MG; BID; PO
     Route: 058
     Dates: start: 20060817

REACTIONS (16)
  - AMNESIA [None]
  - CONFUSIONAL STATE [None]
  - DELIRIUM [None]
  - DISORIENTATION [None]
  - FALL [None]
  - HALLUCINATION, AUDITORY [None]
  - INFECTION [None]
  - INSOMNIA [None]
  - JOINT DISLOCATION [None]
  - LOWER LIMB FRACTURE [None]
  - LUMBAR VERTEBRAL FRACTURE [None]
  - NAUSEA [None]
  - PAIN [None]
  - PSYCHOTIC DISORDER [None]
  - RADIUS FRACTURE [None]
  - ROAD TRAFFIC ACCIDENT [None]
